FAERS Safety Report 9340916 (Version 2)
Quarter: 2013Q3

REPORT INFORMATION
  Report Type: Report from Study
  Country: US (occurrence: US)
  Receive Date: 20130610
  Receipt Date: 20130703
  Transmission Date: 20140515
  Serious: Yes (Other)
  Sender: FDA-Public Use
  Company Number: US-US-EMD SERONO, INC.-7205803

PATIENT
  Age: 48 Year
  Sex: Female

DRUGS (2)
  1. REBIF [Suspect]
     Indication: MULTIPLE SCLEROSIS
     Route: 058
     Dates: start: 20121130
  2. REBIF [Suspect]
     Route: 058
     Dates: start: 20121130

REACTIONS (4)
  - Benign neoplasm of thyroid gland [Recovered/Resolved]
  - Visual acuity reduced [Unknown]
  - Injection site pain [Recovered/Resolved]
  - Influenza like illness [Unknown]
